FAERS Safety Report 9050576 (Version 1)
Quarter: 2013Q1

REPORT INFORMATION
  Report Type: Spontaneous
  Country: US (occurrence: US)
  Receive Date: 20130205
  Receipt Date: 20130205
  Transmission Date: 20140127
  Serious: No
  Sender: FDA-Public Use
  Company Number: US-B.I. PHARMACEUTICALS,INC./RIDGEFIELD-2013-BI-03080BP

PATIENT
  Age: 77 None
  Sex: Female
  Weight: 54 kg

DRUGS (5)
  1. COMBIVENT [Suspect]
     Indication: CHRONIC OBSTRUCTIVE PULMONARY DISEASE
     Route: 055
     Dates: start: 2005
  2. VISTALIC [Concomitant]
     Indication: BLOOD PRESSURE
     Route: 048
  3. VASOTEC [Concomitant]
     Indication: BLOOD PRESSURE
     Dosage: 20 MG
     Route: 048
  4. FLOVENT [Concomitant]
     Indication: CHRONIC OBSTRUCTIVE PULMONARY DISEASE
     Route: 055
  5. DILTIAZEM [Concomitant]
     Indication: BLOOD PRESSURE
     Dosage: 90 MG
     Route: 048

REACTIONS (2)
  - Sensory disturbance [Recovered/Resolved]
  - Blood pressure increased [Recovered/Resolved]
